FAERS Safety Report 4969651-X (Version None)
Quarter: 2006Q2

REPORT INFORMATION
  Report Type: 
  Country: None (occurrence: None)
  Receive Date: 20060411
  Receipt Date: 20060331
  Transmission Date: 20061013
  Serious: Yes (Hospitalization)
  Sender: FDA-Public Use
  Company Number: ES-BOEHRINGER INGELHEIM PHARMACEUTICALS, INC.-2006-ES-00123ES

PATIENT
  Age: 68 Year
  Sex: Female
  Weight: 68 kg

DRUGS (4)
  1. NOLOTIL [Suspect]
     Dates: start: 20050207
  2. ATROVENT [Suspect]
     Route: 055
     Dates: start: 20050209
  3. AUGMENTIN '125' [Suspect]
     Route: 042
     Dates: start: 20050209
  4. VENTOLIN [Suspect]
     Dates: start: 20050209, end: 20050215

REACTIONS (2)
  - PRURITUS [None]
  - URTICARIA [None]
